FAERS Safety Report 4778371-6 (Version None)
Quarter: 2005Q3

REPORT INFORMATION
  Report Type: 
  Country: None (occurrence: None)
  Receive Date: 20050926
  Receipt Date: 20050831
  Transmission Date: 20060218
  Serious: Yes (Other)
  Sender: FDA-Public Use
  Company Number: US-GLAXOSMITHKLINE-A0572556A

PATIENT
  Age: 29 Year
  Sex: Male

DRUGS (2)
  1. ESKALITH CR [Suspect]
     Dosage: 450MG TWICE PER DAY
     Route: 048
     Dates: start: 20050101, end: 20050801
  2. LITHIUM CARBONATE [Suspect]
     Route: 048
     Dates: start: 20050801

REACTIONS (1)
  - MANIA [None]
